FAERS Safety Report 8507706 (Version 2)
Quarter: 2014Q2

REPORT INFORMATION
  Report Type: Spontaneous
  Country: US (occurrence: US)
  Receive Date: 20120412
  Receipt Date: 20140414
  Transmission Date: 20141212
  Serious: No
  Sender: FDA-Public Use
  Company Number: US-ASTRAZENECA-2011SE78640

PATIENT
  Age: 59 Year
  Sex: Male
  Weight: 145.2 kg

DRUGS (3)
  1. NEXIUM [Suspect]
     Indication: GASTROOESOPHAGEAL REFLUX DISEASE
     Route: 048
     Dates: start: 2001
  2. ATENOLOL [Suspect]
     Indication: HYPERTENSION
     Route: 048
     Dates: start: 2010
  3. METFORMIN [Concomitant]
     Indication: DIABETES MELLITUS
     Route: 048
     Dates: start: 2009

REACTIONS (8)
  - Choking [Unknown]
  - Hypertension [Unknown]
  - Weight increased [Unknown]
  - Malaise [Unknown]
  - Depression [Unknown]
  - Vomiting [Unknown]
  - Intentional product misuse [Unknown]
  - Drug dose omission [Unknown]
